FAERS Safety Report 25534977 (Version 3)
Quarter: 2025Q4

REPORT INFORMATION
  Report Type: Spontaneous
  Country: US (occurrence: US)
  Receive Date: 20250709
  Receipt Date: 20251007
  Transmission Date: 20260117
  Serious: No
  Sender: ABBVIE
  Company Number: US-ABBVIE-6357524

PATIENT
  Age: 68 Year
  Sex: Female
  Weight: 55.792 kg

DRUGS (5)
  1. BOTOX COSMETIC [Suspect]
     Active Substance: ONABOTULINUMTOXINA
     Indication: Product used for unknown indication
     Dosage: TIME INTERVAL: AS NECESSARY: EVERY THREE MONTHS
     Route: 065
     Dates: start: 2021, end: 2021
  2. BOTOX COSMETIC [Suspect]
     Active Substance: ONABOTULINUMTOXINA
     Indication: Product used for unknown indication
     Dosage: TIME INTERVAL: AS NECESSARY: UNKNOWN
     Route: 030
     Dates: start: 20250619, end: 20250619
  3. Pfizer [Concomitant]
     Indication: Product used for unknown indication
  4. Moderna [Concomitant]
     Indication: Product used for unknown indication
  5. VITAMIN E [Concomitant]
     Active Substance: .ALPHA.-TOCOPHEROL
     Indication: Product used for unknown indication

REACTIONS (5)
  - Visual impairment [Not Recovered/Not Resolved]
  - Vitreous floaters [Unknown]
  - Blepharospasm [Unknown]
  - Injection site pain [Unknown]
  - Vision blurred [Not Recovered/Not Resolved]

NARRATIVE: CASE EVENT DATE: 20250601
